FAERS Safety Report 7900765-8 (Version None)
Quarter: 2011Q4

REPORT INFORMATION
  Report Type: 
  Country: None (occurrence: None)
  Receive Date: 20111104
  Receipt Date: 20111024
  Transmission Date: 20120403
  Serious: Yes (Hospitalization)
  Sender: FDA-Public Use
  Company Number: TPA2011A06037

PATIENT
  Age: 60 Year
  Sex: Male

DRUGS (7)
  1. ACTOPLUS MET [Suspect]
     Indication: TYPE 2 DIABETES MELLITUS
     Dosage: 15/500 MG, QD, PER ORAL
     Route: 048
     Dates: start: 20061031, end: 20111024
  2. ASPIR-81 (ACETYLSALICYLIC ACID) (TABLETS) [Concomitant]
  3. PRAVASTATIN [Concomitant]
  4. CLARITIN (GLICLAZIDE) [Concomitant]
  5. TRIAMTERENE-HYDROCHLOROTHIAZID (HYDROCHLOROTHIAZIDE, TRIAMTERENE) [Concomitant]
  6. AMLODIPINE-BENAZEPRIL (BENAZEPRIL, AMLODIPINE) [Concomitant]
  7. TRICOR [Concomitant]

REACTIONS (1)
  - BLADDER TRANSITIONAL CELL CARCINOMA [None]
